FAERS Safety Report 5596444-5 (Version None)
Quarter: 2008Q1

REPORT INFORMATION
  Report Type: 
  Country: None (occurrence: None)
  Receive Date: 20080118
  Receipt Date: 20080108
  Transmission Date: 20080703
  Serious: Yes (Other)
  Sender: FDA-Public Use
  Company Number: US-PFIZER INC-2007090765

PATIENT
  Sex: Female
  Weight: 77.3 kg

DRUGS (10)
  1. CHANTIX [Suspect]
     Indication: SMOKING CESSATION THERAPY
     Route: 048
     Dates: start: 20071001, end: 20070101
  2. XOPENEX [Suspect]
     Route: 055
  3. IPRATROPIUM BROMIDE [Suspect]
     Route: 055
  4. FUROSEMIDE [Concomitant]
  5. LISINOPRIL [Concomitant]
  6. ASPIRIN [Concomitant]
  7. XANAX [Concomitant]
  8. MICRO-K [Concomitant]
  9. ALBUTEROL [Concomitant]
     Route: 055
  10. NEXIUM [Concomitant]
     Indication: ULCER

REACTIONS (4)
  - LUNG NEOPLASM MALIGNANT [None]
  - NAUSEA [None]
  - PRESYNCOPE [None]
  - TREMOR [None]
